FAERS Safety Report 23389246 (Version 1)
Quarter: 2024Q1

REPORT INFORMATION
  Report Type: Spontaneous
  Country: US (occurrence: US)
  Receive Date: 20240110
  Receipt Date: 20240110
  Transmission Date: 20240410
  Serious: No
  Sender: FDA-Public Use
  Company Number: US-REGENERON PHARMACEUTICALS, INC.-2022-158125

PATIENT
  Sex: Male

DRUGS (1)
  1. EYLEA [Suspect]
     Active Substance: AFLIBERCEPT
     Indication: Neovascular age-related macular degeneration
     Dosage: 2 MG, RIGHT EYE, FREQUENCY:1 (ONCE) FORMULATION: PRE-FILLED SYRINGE (UNKNOWN)
     Dates: start: 20221013, end: 20221013

REACTIONS (4)
  - Renal pain [Recovered/Resolved]
  - Asthenia [Recovered/Resolved]
  - Trismus [Recovered/Resolved]
  - Dizziness [Recovered/Resolved]

NARRATIVE: CASE EVENT DATE: 20221001
